FAERS Safety Report 11096662 (Version 1)
Quarter: 2015Q2

REPORT INFORMATION
  Report Type: Report from Study
  Country: JP (occurrence: JP)
  Receive Date: 20150507
  Receipt Date: 20150507
  Transmission Date: 20150821
  Serious: Yes (Death)
  Sender: FDA-Public Use
  Company Number: JP-TEVA-560119ISR

PATIENT

DRUGS (4)
  1. CISPLATIN. [Suspect]
     Active Substance: CISPLATIN
     Indication: OESOPHAGEAL CANCER METASTATIC
     Dosage: 80 MG/M2 DAILY; 2-H INFUSION ON DAY 1 OF EACH CYCLE
     Route: 042
  2. FLUOROURACIL. [Suspect]
     Active Substance: FLUOROURACIL
     Indication: OESOPHAGEAL CANCER METASTATIC
     Dosage: 800 MG/M2 DAILY; 24-H CONTINUOUS INFUSION ON DAYS 1-5
     Route: 042
  3. DOCETAXEL. [Suspect]
     Active Substance: DOCETAXEL
     Indication: OESOPHAGEAL CANCER METASTATIC
     Dosage: 30 MG/M2 DAILY; ON DAY 1 AND 15
     Route: 042
  4. DOCETAXEL. [Suspect]
     Active Substance: DOCETAXEL
     Dosage: 40 MG/M2 DAILY; ON DAY 1 AND 15
     Route: 042

REACTIONS (1)
  - Pneumonitis [Fatal]
